FAERS Safety Report 14665511 (Version 3)
Quarter: 2018Q2

REPORT INFORMATION
  Report Type: Report from Study
  Country: JP (occurrence: JP)
  Receive Date: 20180321
  Receipt Date: 20180510
  Transmission Date: 20180711
  Serious: Yes (Hospitalization, Other)
  Sender: FDA-Public Use
  Company Number: JP-SA-2018SA079678

PATIENT
  Age: 44 Year
  Sex: Female

DRUGS (11)
  1. PARIET [Concomitant]
     Active Substance: RABEPRAZOLE SODIUM
     Indication: ACUTE MYELOID LEUKAEMIA
     Route: 048
  2. NOVAMIN [Concomitant]
     Indication: ACUTE MYELOID LEUKAEMIA
     Route: 048
  3. FLUDARA [Concomitant]
     Active Substance: FLUDARABINE PHOSPHATE
     Route: 065
  4. DEPAS [Concomitant]
     Active Substance: ETIZOLAM
     Indication: ACUTE MYELOID LEUKAEMIA
     Route: 048
  5. CYLOCIDE N [Concomitant]
     Active Substance: CYTARABINE
     Route: 065
  6. URSODEOXYCHOLIC ACID [Concomitant]
     Active Substance: URSODIOL
     Indication: ACUTE MYELOID LEUKAEMIA
     Route: 048
  7. EVOLTRA [Suspect]
     Active Substance: CLOFARABINE
     Indication: ACUTE MYELOID LEUKAEMIA
     Route: 042
     Dates: start: 20140530, end: 20140603
  8. WYPAX [Concomitant]
     Active Substance: LORAZEPAM
     Indication: ACUTE MYELOID LEUKAEMIA
     Route: 048
  9. PRIMPERAN [Concomitant]
     Active Substance: METOCLOPRAMIDE HYDROCHLORIDE
     Indication: ACUTE MYELOID LEUKAEMIA
     Route: 048
  10. CRAVIT [Concomitant]
     Active Substance: LEVOFLOXACIN
     Indication: ACUTE MYELOID LEUKAEMIA
     Route: 048
  11. ITRIZOLE [Concomitant]
     Active Substance: ITRACONAZOLE
     Indication: ACUTE MYELOID LEUKAEMIA
     Route: 048

REACTIONS (2)
  - Hepatic function abnormal [Recovered/Resolved]
  - Blood disorder [Not Recovered/Not Resolved]

NARRATIVE: CASE EVENT DATE: 20140602
